FAERS Safety Report 8468140-8 (Version None)
Quarter: 2012Q2

REPORT INFORMATION
  Report Type: 
  Country: None (occurrence: None)
  Receive Date: 20120626
  Receipt Date: 20120622
  Transmission Date: 20120825
  Serious: Yes (Death, Other)
  Sender: FDA-Public Use
  Company Number: US-ABBOTT-12P-163-0949252-00

PATIENT
  Sex: Female

DRUGS (6)
  1. LAMOTRIGINE [Concomitant]
     Indication: AFFECTIVE DISORDER
  2. HUMIRA [Suspect]
     Route: 058
     Dates: start: 20101125
  3. HUMIRA [Suspect]
     Indication: PSORIASIS
     Route: 058
     Dates: start: 20101014, end: 20101014
  4. ABILIFY [Concomitant]
     Indication: AFFECTIVE DISORDER
  5. VERAPAMIL [Concomitant]
     Indication: MIGRAINE
  6. FENOFIBRATE [Concomitant]
     Indication: HYPERLIPIDAEMIA

REACTIONS (1)
  - SARCOMA [None]
